FAERS Safety Report 5563350-1 (Version None)
Quarter: 2007Q4

REPORT INFORMATION
  Report Type: 
  Country: None (occurrence: None)
  Receive Date: 20071217
  Receipt Date: 20071210
  Transmission Date: 20080405
  Serious: Yes (Other)
  Sender: FDA-Public Use
  Company Number: PHBS2007DK20772

PATIENT
  Sex: Female
  Weight: 65 kg

DRUGS (1)
  1. LAMISIL [Suspect]
     Indication: ONYCHOMYCOSIS
     Dosage: 250 MG/DAY
     Route: 048
     Dates: start: 20070401, end: 20070501

REACTIONS (5)
  - GENERALISED OEDEMA [None]
  - NAIL DISORDER [None]
  - RASH [None]
  - RASH PRURITIC [None]
  - SKIN DISORDER [None]
